FAERS Safety Report 10100419 (Version 1)
Quarter: 2014Q2

REPORT INFORMATION
  Report Type: Spontaneous
  Country: US (occurrence: US)
  Receive Date: 20140423
  Receipt Date: 20140423
  Transmission Date: 20141212
  Serious: Yes (Other)
  Sender: FDA-Public Use
  Company Number: US-SA-2014SA048411

PATIENT
  Age: 45 Year
  Sex: Female

DRUGS (2)
  1. LANTUS SOLOSTAR [Suspect]
     Indication: TYPE 2 DIABETES MELLITUS
     Dosage: DOSE-35-38U?DAILY DOSE 35-38U
     Route: 065
     Dates: start: 201311
  2. SOLOSTAR [Concomitant]
     Indication: DEVICE THERAPY
     Dates: start: 201311

REACTIONS (1)
  - Visual acuity reduced [Unknown]
